FAERS Safety Report 14825033 (Version 2)
Quarter: 2018Q3

REPORT INFORMATION
  Report Type: Spontaneous
  Country: SK (occurrence: SK)
  Receive Date: 20180430
  Receipt Date: 20180914
  Transmission Date: 20181010
  Serious: Yes (Other)
  Sender: FDA-Public Use
  Company Number: SK-REGENERON PHARMACEUTICALS, INC.-2018-22371

PATIENT

DRUGS (2)
  1. EYLEA [Suspect]
     Active Substance: AFLIBERCEPT
     Indication: PRODUCT USED FOR UNKNOWN INDICATION
     Dosage: RECEIVED A TOTAL OF 7 INJECTIONS
  2. EYLEA [Suspect]
     Active Substance: AFLIBERCEPT
     Dosage: RECEIVED A TOTAL OF 7 INJECTIONS

REACTIONS (2)
  - Blindness unilateral [Unknown]
  - Retinal pigment epithelial tear [Unknown]
